FAERS Safety Report 4505419-6 (Version None)
Quarter: 2004Q4

REPORT INFORMATION
  Report Type: 
  Country: None (occurrence: None)
  Receive Date: 20041018
  Receipt Date: 20040712
  Transmission Date: 20050328
  Serious: Yes (Life-Threatening)
  Sender: FDA-Public Use
  Company Number: 207653

PATIENT
  Age: 67 Year
  Sex: Male
  Weight: 68 kg

DRUGS (8)
  1. XOLAIR [Suspect]
     Indication: ASTHMA
     Dosage: 225 MG Q2W SUBCUTANEOUS
     Route: 058
     Dates: start: 20030918, end: 20040609
  2. IMMUNOTHERAPY(ANTIGEN, ALLERGENIC EXTRACTS) [Concomitant]
  3. CORTICOSTEROIDS [Concomitant]
  4. ADVAIR DISKUS (FLUTICASONE PROPIONATE, SLAMETEROL XINAFOATE) [Concomitant]
  5. SINGULAIR [Concomitant]
  6. CLARITIN [Concomitant]
  7. PATANOL [Concomitant]
  8. FLONASE [Concomitant]

REACTIONS (1)
  - ASTHMA [None]
